FAERS Safety Report 6544668-2 (Version None)
Quarter: 2010Q1

REPORT INFORMATION
  Report Type: 
  Country: None (occurrence: None)
  Receive Date: 20100120
  Receipt Date: 20100120
  Transmission Date: 20100710
  Serious: Yes (Other)
  Sender: FDA-Public Use
  Company Number: None

PATIENT
  Age: 60 Year
  Sex: Female
  Weight: 54.4316 kg

DRUGS (1)
  1. FOSAMAX PLUS D [Suspect]
     Indication: OSTEOPENIA
     Dosage: 1 TABLET WEEKLY PO 3 YEARS 4 MONTHS
     Route: 048
     Dates: start: 20060820, end: 20091221

REACTIONS (2)
  - OSTEOARTHRITIS [None]
  - OSTEONECROSIS [None]
